FAERS Safety Report 18394442 (Version 3)
Quarter: 2021Q2

REPORT INFORMATION
  Report Type: Spontaneous
  Country: US (occurrence: US)
  Receive Date: 20201016
  Receipt Date: 20210524
  Transmission Date: 20210717
  Serious: Yes (Hospitalization, Other)
  Sender: FDA-Public Use
  Company Number: US-PFIZER INC-2020399061

PATIENT
  Age: 59 Year
  Sex: Female
  Weight: 66 kg

DRUGS (1)
  1. LYRICA [Suspect]
     Active Substance: PREGABALIN
     Indication: DIABETIC NEUROPATHY
     Dosage: 400 MG, DAILY (100MG IN MORNING,100MG AT NOON,200MG AT HOUR OF SLEEP)
     Route: 048

REACTIONS (8)
  - Crying [Unknown]
  - Weight increased [Unknown]
  - COVID-19 [Unknown]
  - Off label use [Unknown]
  - Suicidal ideation [Recovered/Resolved with Sequelae]
  - Disturbance in attention [Unknown]
  - Depression [Recovering/Resolving]
  - Depressed mood [Unknown]

NARRATIVE: CASE EVENT DATE: 202004
